FAERS Safety Report 20070668 (Version 1)
Quarter: 2021Q4

REPORT INFORMATION
  Report Type: Spontaneous
  Country: DE (occurrence: DE)
  Receive Date: 20211115
  Receipt Date: 20211115
  Transmission Date: 20220303
  Serious: Yes (Other)
  Sender: FDA-Public Use
  Company Number: None

PATIENT
  Sex: Male

DRUGS (1)
  1. ARIPIPRAZOLE [Suspect]
     Active Substance: ARIPIPRAZOLE
     Indication: Product used for unknown indication
     Dosage: 20 MG, UNK (PZN 00999848), SINGLE USE/1X IN THE EVENING
     Route: 065

REACTIONS (2)
  - Unresponsive to stimuli [Unknown]
  - Fatigue [Unknown]

NARRATIVE: CASE EVENT DATE: 20170830
